FAERS Safety Report 23559999 (Version 3)
Quarter: 2024Q1

REPORT INFORMATION
  Report Type: Spontaneous
  Country: GB (occurrence: GB)
  Receive Date: 20240223
  Receipt Date: 20240325
  Transmission Date: 20240409
  Serious: Yes (Hospitalization)
  Sender: FDA-Public Use
  Company Number: GB-ABBVIE-5640849

PATIENT
  Age: 72 Year
  Sex: Female

DRUGS (11)
  1. AZACITIDINE [Suspect]
     Active Substance: AZACITIDINE
     Indication: Acute myeloid leukaemia
     Dosage: 110 MILLIGRAM
     Route: 065
     Dates: start: 20240108, end: 20240116
  2. AZACITIDINE [Suspect]
     Active Substance: AZACITIDINE
     Dosage: 110 MILLIGRAM
     Route: 065
     Dates: start: 20240226
  3. VENETOCLAX [Suspect]
     Active Substance: VENETOCLAX
     Indication: Acute myeloid leukaemia
     Dosage: 100 MILLIGRAM, QD
     Route: 065
     Dates: start: 20240108, end: 20240204
  4. VENETOCLAX [Suspect]
     Active Substance: VENETOCLAX
     Dosage: 400 MILLIGRAM, QD
     Route: 065
     Dates: start: 20240226
  5. ACYCLOVIR SODIUM [Concomitant]
     Active Substance: ACYCLOVIR SODIUM
     Indication: Product used for unknown indication
     Dosage: UNK
     Route: 065
  6. POSACONAZOLE [Concomitant]
     Active Substance: POSACONAZOLE
     Indication: Product used for unknown indication
     Dosage: UNK
     Route: 065
  7. ASPIRIN [Concomitant]
     Active Substance: ASPIRIN
     Indication: Transient ischaemic attack
     Dosage: 75 MILLIGRAM, QD
     Route: 065
     Dates: start: 20060606
  8. AMLODIPINE [Concomitant]
     Active Substance: AMLODIPINE BESYLATE
     Indication: Hypertension
     Dosage: 10 MILLIGRAM, QD
     Route: 065
     Dates: start: 20150626
  9. ATORVASTATIN [Concomitant]
     Active Substance: ATORVASTATIN
     Indication: Prophylaxis
     Dosage: 10 MILLIGRAM, QD
     Route: 065
     Dates: start: 20201130
  10. ACYCLOVIR [Concomitant]
     Active Substance: ACYCLOVIR
     Indication: Prophylaxis
     Dosage: 400 MILLIGRAM, BID
     Route: 065
     Dates: start: 20240108
  11. SULFAMETHOXAZOLE\TRIMETHOPRIM [Concomitant]
     Active Substance: SULFAMETHOXAZOLE\TRIMETHOPRIM
     Indication: Prophylaxis
     Dosage: 480 MILLIGRAM, BID (BD, MON WED, FRIDAY)
     Route: 065
     Dates: start: 20240108

REACTIONS (14)
  - Pancreatitis acute [Recovered/Resolved with Sequelae]
  - Acute myeloid leukaemia [Recovered/Resolved]
  - Hepatic steatosis [Unknown]
  - Gastric volvulus [Unknown]
  - Abdominal rigidity [Unknown]
  - Hepatic cyst [Unknown]
  - Abdominal tenderness [Unknown]
  - Amylase increased [Unknown]
  - Aortic aneurysm [Unknown]
  - Renal disorder [Unknown]
  - Pancreatitis relapsing [Unknown]
  - Gastric dilatation [Unknown]
  - Abdominal pain [Unknown]
  - Neutropenia [Recovered/Resolved]

NARRATIVE: CASE EVENT DATE: 20240101
